FAERS Safety Report 7863886 (Version 4)
Quarter: 2012Q4

REPORT INFORMATION
  Report Type: 
  Country: JP (occurrence: US)
  Receive Date: 20110321
  Receipt Date: 20121022
  Transmission Date: 20130627
  Serious: Yes (Other)
  Sender: FDA-Public Use
  Company Number: US-JNJFOC-20090906032

PATIENT
  Sex: Female

DRUGS (1)
  1. LEVAQUIN [Suspect]
     Indication: BACTERIAL INFECTION
     Route: 048
     Dates: start: 20010601, end: 20090502

REACTIONS (4)
  - Tendon injury [Unknown]
  - Trigger finger [Unknown]
  - Epicondylitis [Unknown]
  - Epicondylitis [Recovering/Resolving]
